FAERS Safety Report 11676614 (Version 1)
Quarter: 2015Q4

REPORT INFORMATION
  Report Type: Spontaneous
  Country: US (occurrence: US)
  Receive Date: 20151028
  Receipt Date: 20151028
  Transmission Date: 20160304
  Serious: No
  Sender: FDA-Public Use
  Company Number: US-PFIZER INC-2015360897

PATIENT
  Sex: Male

DRUGS (2)
  1. NOVOCAINE [Interacting]
     Active Substance: PROCAINE
     Dosage: UNK
  2. VIAGRA [Suspect]
     Active Substance: SILDENAFIL CITRATE
     Dosage: UNK

REACTIONS (1)
  - Inhibitory drug interaction [Unknown]
